FAERS Safety Report 9688347 (Version 1)
Quarter: 2013Q4

REPORT INFORMATION
  Report Type: Spontaneous
  Country: US (occurrence: None)
  Receive Date: 20131113
  Receipt Date: 20131113
  Transmission Date: 20140711
  Serious: No
  Sender: FDA-Public Use
  Company Number: None

PATIENT
  Age: 71 Year
  Sex: Male

DRUGS (1)
  1. AUGMENTIN [Suspect]
     Dates: start: 20120204, end: 20120304

REACTIONS (2)
  - Hepatitis cholestatic [None]
  - Liver injury [None]
